FAERS Safety Report 11115215 (Version 2)
Quarter: 2015Q2

REPORT INFORMATION
  Report Type: Spontaneous
  Country: US (occurrence: US)
  Receive Date: 20150515
  Receipt Date: 20150526
  Transmission Date: 20150821
  Serious: Yes (Other)
  Sender: FDA-Public Use
  Company Number: US-LUNDBECK-DKLU1112635

PATIENT
  Sex: Male

DRUGS (2)
  1. ONFI [Suspect]
     Active Substance: CLOBAZAM
     Indication: ANGELMAN^S SYNDROME
     Route: 065
  2. ONFI [Suspect]
     Active Substance: CLOBAZAM
     Indication: SEIZURE

REACTIONS (1)
  - Stevens-Johnson syndrome [Recovered/Resolved]
